FAERS Safety Report 7227220-5 (Version None)
Quarter: 2011Q1

REPORT INFORMATION
  Report Type: 
  Country: None (occurrence: None)
  Receive Date: 20110114
  Receipt Date: 20101222
  Transmission Date: 20110831
  Serious: Yes (Death, Hospitalization)
  Sender: FDA-Public Use
  Company Number: A0801483A

PATIENT
  Age: 54 Year
  Sex: Male
  Weight: 109.1 kg

DRUGS (5)
  1. STARLIX [Concomitant]
  2. METFORMIN HCL [Concomitant]
  3. AVANDIA [Suspect]
     Dosage: 5MG TWICE PER DAY
     Route: 048
     Dates: end: 20070601
  4. AVANDAMET [Suspect]
     Route: 048
     Dates: end: 20050101
  5. ACCUPRIL [Concomitant]

REACTIONS (7)
  - ARTERIOSCLEROSIS CORONARY ARTERY [None]
  - ATRIAL FIBRILLATION [None]
  - CARDIAC FAILURE CONGESTIVE [None]
  - RHABDOMYOSARCOMA [None]
  - CHRONIC OBSTRUCTIVE PULMONARY DISEASE [None]
  - HYPERTENSION [None]
  - DIABETES MELLITUS [None]
